FAERS Safety Report 6761537-3 (Version None)
Quarter: 2010Q2

REPORT INFORMATION
  Report Type: 
  Country: None (occurrence: None)
  Receive Date: 20100607
  Receipt Date: 20100527
  Transmission Date: 20101027
  Serious: Yes (Other)
  Sender: FDA-Public Use
  Company Number: 020779036A

PATIENT
  Age: 59 Year
  Sex: Male

DRUGS (4)
  1. PREVIDENT 5000 PLUS SPEARMINT TOOTHPASTE [Suspect]
     Indication: DENTAL CARIES
     Dosage: PEA SIZE AMT./2XDAY ORAL
     Route: 048
  2. NEXIUM [Concomitant]
  3. ALLOPURINOL [Concomitant]
  4. COZAAR [Concomitant]

REACTIONS (7)
  - DYSPNOEA [None]
  - GINGIVAL SWELLING [None]
  - LIP SWELLING [None]
  - NO THERAPEUTIC RESPONSE [None]
  - ORAL PRURITUS [None]
  - PALATAL OEDEMA [None]
  - PARAESTHESIA ORAL [None]
